FAERS Safety Report 4949139-2 (Version None)
Quarter: 2006Q1

REPORT INFORMATION
  Report Type: 
  Country: None (occurrence: None)
  Receive Date: 20060321
  Receipt Date: 20060210
  Transmission Date: 20060701
  Serious: Yes (Death, Life-Threatening, Other)
  Sender: FDA-Public Use
  Company Number: PHBS2006JP02318

PATIENT
  Age: 79 Year
  Sex: Male
  Weight: 35 kg

DRUGS (17)
  1. GLEEVEC [Suspect]
     Indication: CHRONIC MYELOID LEUKAEMIA
     Dosage: 400 MG, QD
     Route: 048
     Dates: start: 20030115, end: 20030131
  2. GLEEVEC [Suspect]
     Dosage: 300 MG/D
     Route: 048
     Dates: start: 20030226, end: 20030710
  3. GLEEVEC [Suspect]
     Dosage: 300 MG, QD
     Route: 048
     Dates: start: 20050711, end: 20051218
  4. GLEEVEC [Suspect]
     Dosage: 200 MG, QD
     Route: 048
     Dates: start: 20051219, end: 20060110
  5. ALDACTONE [Concomitant]
     Indication: CARDIAC FAILURE
     Dosage: 25 MG/D
     Route: 048
  6. LASIX [Concomitant]
     Indication: CARDIAC FAILURE
     Dosage: 80 MG/D
     Route: 048
  7. WARFARIN [Concomitant]
     Indication: ATRIAL FIBRILLATION
     Dosage: 1 MG/D
     Route: 048
     Dates: end: 20060120
  8. SUNRYTHM [Concomitant]
     Route: 048
  9. GASTER [Concomitant]
     Indication: PROPHYLAXIS AGAINST GASTROINTESTINAL ULCER
     Dosage: 40 MG/D
     Route: 048
  10. NEUER [Concomitant]
     Indication: PROPHYLAXIS AGAINST GASTROINTESTINAL ULCER
     Route: 048
  11. SELBEX [Concomitant]
     Indication: PROPHYLAXIS AGAINST GASTROINTESTINAL ULCER
     Route: 048
  12. BERIZYM [Concomitant]
     Indication: PROPHYLAXIS AGAINST GASTROINTESTINAL ULCER
     Route: 048
  13. ZYLORIC [Concomitant]
     Dosage: 200 MG/D
     Route: 048
  14. ACTONEL [Concomitant]
     Indication: OSTEOPOROSIS
     Route: 048
     Dates: start: 20050912, end: 20051017
  15. ASPIRIN [Concomitant]
     Indication: ATRIAL FIBRILLATION
     Dosage: 100 MG/D
     Route: 048
     Dates: start: 20060122
  16. HYDREA [Concomitant]
     Indication: CHRONIC MYELOID LEUKAEMIA
     Dosage: 500 MG, QD
     Route: 048
     Dates: start: 20060218
  17. SULPERAZON [Concomitant]
     Dosage: 2 G/D
     Route: 041
     Dates: start: 20060203, end: 20060212

REACTIONS (15)
  - ACTIVITIES OF DAILY LIVING IMPAIRED [None]
  - ANOREXIA [None]
  - BLOOD PRESSURE DECREASED [None]
  - CARBON DIOXIDE INCREASED [None]
  - CARDIO-RESPIRATORY ARREST [None]
  - FLUID RETENTION [None]
  - HYPERCAPNIA [None]
  - HYPOXIA [None]
  - INTERSTITIAL LUNG DISEASE [None]
  - LUNG NEOPLASM MALIGNANT [None]
  - OXYGEN SATURATION DECREASED [None]
  - PNEUMONIA [None]
  - PYREXIA [None]
  - RESPIRATORY FAILURE [None]
  - SOMNOLENCE [None]
